FAERS Safety Report 7176541-3 (Version None)
Quarter: 2010Q4

REPORT INFORMATION
  Report Type: 
  Country: None (occurrence: None)
  Receive Date: 20101220
  Receipt Date: 20101215
  Transmission Date: 20110411
  Serious: Yes (Other)
  Sender: FDA-Public Use
  Company Number: JP-PFIZER INC-2010173082

PATIENT
  Age: 78 Year
  Sex: Female

DRUGS (1)
  1. HALCION [Suspect]
     Dosage: 0.25 MG, DAILY
     Route: 048

REACTIONS (1)
  - DEMENTIA [None]
